FAERS Safety Report 14889980 (Version 1)
Quarter: 2018Q2

REPORT INFORMATION
  Report Type: Spontaneous
  Country: US (occurrence: US)
  Receive Date: 20180514
  Receipt Date: 20180514
  Transmission Date: 20180711
  Serious: Yes (Other)
  Sender: FDA-Public Use
  Company Number: US-AMGEN-USASP2018062949

PATIENT
  Age: 81 Year
  Sex: Female
  Weight: 42.63 kg

DRUGS (4)
  1. MORPHINE [Concomitant]
     Active Substance: MORPHINE
     Indication: PAIN
     Dosage: 45 MG, Q4H
     Route: 048
  2. MORPHINE [Concomitant]
     Active Substance: MORPHINE
     Dosage: 50 MG, Q12H
     Route: 061
  3. PROCRIT [Suspect]
     Active Substance: ERYTHROPOIETIN
     Indication: ANAEMIA
     Dosage: UNK
     Route: 030
     Dates: start: 2017
  4. PROCRIT [Suspect]
     Active Substance: ERYTHROPOIETIN
     Dosage: UNK
     Route: 030

REACTIONS (4)
  - Facial paralysis [Not Recovered/Not Resolved]
  - Myalgia [Recovered/Resolved]
  - Incorrect route of drug administration [Unknown]
  - Salivary gland disorder [Not Recovered/Not Resolved]

NARRATIVE: CASE EVENT DATE: 2017
